FAERS Safety Report 8415025-9 (Version None)
Quarter: 2012Q2

REPORT INFORMATION
  Report Type: 
  Country: None (occurrence: None)
  Receive Date: 20120606
  Receipt Date: 20120525
  Transmission Date: 20120825
  Serious: Yes (Hospitalization, Other)
  Sender: FDA-Public Use
  Company Number: BR-JNJFOC-20120521067

PATIENT
  Sex: Female
  Weight: 45 kg

DRUGS (6)
  1. CODEINE [Concomitant]
     Indication: PAIN
     Route: 065
  2. DEFLAZACORT [Concomitant]
     Route: 065
  3. LEVOTHYROXINE SODIUM [Concomitant]
     Indication: THYROID DISORDER
     Route: 065
  4. ATENOLOL [Concomitant]
     Indication: BLOOD PRESSURE
     Route: 065
  5. REMICADE [Suspect]
     Indication: RHEUMATOID ARTHRITIS
     Route: 042
  6. CIMETIDINE [Concomitant]
     Indication: GASTRIC DISORDER
     Route: 065

REACTIONS (5)
  - ADVERSE EVENT [None]
  - CARDIAC OPERATION [None]
  - VENOUS OCCLUSION [None]
  - URINARY TRACT INFECTION [None]
  - THYROID FUNCTION TEST ABNORMAL [None]
